FAERS Safety Report 11143275 (Version 1)
Quarter: 2015Q2

REPORT INFORMATION
  Report Type: Spontaneous
  Country: US (occurrence: US)
  Receive Date: 20150526
  Receipt Date: 20150526
  Transmission Date: 20150821
  Serious: No
  Sender: FDA-Public Use
  Company Number: US-NOVEN PHARMACEUTICALS, INC.-US2015000212

PATIENT
  Age: 46 Year
  Sex: Female

DRUGS (3)
  1. LEVOTHYROXINE SODIUM. [Concomitant]
     Active Substance: LEVOTHYROXINE SODIUM
  2. NATURE-THROID [Concomitant]
     Active Substance: THYROID, PORCINE
  3. MINIVELLE [Suspect]
     Active Substance: ESTRADIOL
     Indication: HORMONE REPLACEMENT THERAPY
     Dosage: 0.1 MG, UNK
     Route: 062
     Dates: start: 201311

REACTIONS (6)
  - Hot flush [Recovered/Resolved]
  - Drug effect decreased [Unknown]
  - Blood oestrogen abnormal [Unknown]
  - Product adhesion issue [Unknown]
  - Feeling abnormal [Unknown]
  - Incorrect drug administration duration [Unknown]
